FAERS Safety Report 20003128 (Version 1)
Quarter: 2021Q4

REPORT INFORMATION
  Report Type: Spontaneous
  Country: FR (occurrence: FR)
  Receive Date: 20211027
  Receipt Date: 20211027
  Transmission Date: 20220304
  Serious: Yes (Hospitalization)
  Sender: FDA-Public Use
  Company Number: FR-ROCHE-2945617

PATIENT
  Age: 30 Year
  Sex: Male
  Weight: 36 kg

DRUGS (11)
  1. RIVOTRIL [Suspect]
     Active Substance: CLONAZEPAM
     Indication: Wrong patient received product
     Dosage: 10 DROPS.
     Route: 048
  2. POTASSIUM [Suspect]
     Active Substance: POTASSIUM
     Indication: Wrong patient received product
     Route: 048
  3. ALFUZOSIN [Suspect]
     Active Substance: ALFUZOSIN
     Indication: Wrong patient received product
     Route: 048
  4. SABRIL [Suspect]
     Active Substance: VIGABATRIN
     Indication: Wrong patient received product
     Route: 048
  5. TRILEPTAL [Suspect]
     Active Substance: OXCARBAZEPINE
     Indication: Wrong patient received product
     Route: 048
  6. VALPROATE SODIUM [Suspect]
     Active Substance: VALPROATE SODIUM
     Indication: Wrong patient received product
     Route: 048
  7. POLYETHYLENE GLYCOL 4000 [Suspect]
     Active Substance: POLYETHYLENE GLYCOL 4000
     Indication: Wrong patient received product
     Route: 048
  8. LANSOPRAZOLE [Concomitant]
     Active Substance: LANSOPRAZOLE
  9. MOVICOL [Concomitant]
     Active Substance: POLYETHYLENE GLYCOL 3350\POTASSIUM CHLORIDE\SODIUM BICARBONATE\SODIUM CHLORIDE
  10. TRIMEBUTINE MALEATE [Concomitant]
     Active Substance: TRIMEBUTINE MALEATE
  11. VOGALENE [Concomitant]
     Active Substance: METOPIMAZINE

REACTIONS (3)
  - Coma [Recovered/Resolved]
  - Hypotension [Recovered/Resolved]
  - Wrong patient received product [Unknown]

NARRATIVE: CASE EVENT DATE: 20210617
